FAERS Safety Report 4383621-4 (Version None)
Quarter: 2004Q2

REPORT INFORMATION
  Report Type: 
  Country: None (occurrence: None)
  Receive Date: 20040623
  Receipt Date: 20040615
  Transmission Date: 20050107
  Serious: Yes (Hospitalization)
  Sender: FDA-Public Use
  Company Number: PHNR2004AU01056

PATIENT
  Age: 73 Year
  Sex: Female
  Weight: 56 kg

DRUGS (8)
  1. LAMISIL [Suspect]
     Route: 048
  2. VIOXX [Suspect]
     Route: 048
  3. DIAMICRON [Concomitant]
  4. EFFEXOR [Concomitant]
  5. FOLIC ACID [Concomitant]
  6. FOSAMAX [Concomitant]
  7. LANOXIN [Concomitant]
  8. LASIX [Concomitant]

REACTIONS (1)
  - HYPOGLYCAEMIA [None]
